FAERS Safety Report 8369406-2 (Version None)
Quarter: 2012Q2

REPORT INFORMATION
  Report Type: 
  Country: None (occurrence: None)
  Receive Date: 20120518
  Receipt Date: 20120511
  Transmission Date: 20120825
  Serious: Yes (Hospitalization, Other)
  Sender: FDA-Public Use
  Company Number: DE-PFIZER INC-2012082417

PATIENT
  Age: 37 Year
  Sex: Male
  Weight: 128 kg

DRUGS (7)
  1. LYRICA [Suspect]
     Dosage: 1.2 G DAILY AND HIGHER
     Dates: start: 20100101
  2. LYRICA [Suspect]
     Dosage: 300 MG SIX TIMES DAILY
  3. METHADONE [Concomitant]
     Indication: SUPPLEMENTATION THERAPY
     Dosage: 20 ML 1% DAILY
     Dates: start: 19980101, end: 20120414
  4. TETRAHYDROCANNABINOL [Concomitant]
     Dosage: 2 - 3 G DAILY
  5. NICOTINE [Concomitant]
     Dosage: UNK
  6. LYRICA [Suspect]
     Dosage: 900 MG, AT LEAST TWICE DAILY
  7. LYRICA [Suspect]
     Dosage: 50 MG, UNK
     Dates: end: 20120429

REACTIONS (12)
  - DRUG WITHDRAWAL SYNDROME [None]
  - SLEEP DISORDER [None]
  - DRUG DEPENDENCE [None]
  - DRUG ABUSE [None]
  - HYPERHIDROSIS [None]
  - ANXIETY [None]
  - MENTAL DISABILITY [None]
  - ABNORMAL BEHAVIOUR [None]
  - RESTLESSNESS [None]
  - ARTHROPATHY [None]
  - NAUSEA [None]
  - MUSCLE DISORDER [None]
